FAERS Safety Report 14033216 (Version 1)
Quarter: 2017Q4

REPORT INFORMATION
  Report Type: Spontaneous
  Country: US (occurrence: US)
  Receive Date: 20171002
  Receipt Date: 20171002
  Transmission Date: 20180321
  Serious: Yes (Disabling, Other)
  Sender: FDA-Public Use
  Company Number: None

PATIENT
  Age: 37 Year
  Sex: Female
  Weight: 67.5 kg

DRUGS (3)
  1. GRALISE [Suspect]
     Active Substance: GABAPENTIN
     Indication: NEUROPATHY PERIPHERAL
     Dosage: ?          QUANTITY:3 CAPSULE(S);?
     Route: 048
  2. MIRENA [Concomitant]
     Active Substance: LEVONORGESTREL
  3. FLONASE [Concomitant]
     Active Substance: FLUTICASONE PROPIONATE

REACTIONS (4)
  - Hunger [None]
  - Increased appetite [None]
  - Blood pressure increased [None]
  - Weight decreased [None]

NARRATIVE: CASE EVENT DATE: 20170915
